FAERS Safety Report 4487387-9 (Version None)
Quarter: 2004Q4

REPORT INFORMATION
  Report Type: 
  Country: None (occurrence: None)
  Receive Date: 20041022
  Receipt Date: 20041005
  Transmission Date: 20050328
  Serious: Yes (Death, Hospitalization, Other)
  Sender: FDA-Public Use
  Company Number: A-CH2003-03782

PATIENT
  Age: 74 Year
  Sex: Female

DRUGS (11)
  1. TRACLEER [Suspect]
     Indication: PULMONARY HYPERTENSION
     Dosage: SEE IMAGE
     Route: 048
     Dates: start: 20030616, end: 20030701
  2. TRACLEER [Suspect]
     Indication: PULMONARY HYPERTENSION
     Dosage: SEE IMAGE
     Route: 048
     Dates: start: 20030701, end: 20031030
  3. TRACLEER [Suspect]
     Indication: PULMONARY HYPERTENSION
     Dosage: SEE IMAGE
     Route: 048
     Dates: start: 20031031, end: 20031109
  4. TRACLEER [Suspect]
     Indication: PULMONARY HYPERTENSION
     Dosage: SEE IMAGE
     Route: 048
     Dates: start: 20031110, end: 20031112
  5. PREVISCAN (FLUINDIONE) [Concomitant]
  6. NEURONTIN [Concomitant]
  7. FUNGIZONE [Concomitant]
  8. OMEPRAZOLE [Concomitant]
  9. SULFARLEM (ANETHOLE TRITHIONE) [Concomitant]
  10. CALCIUM CARBONATE (CALCIUM CARBONATE) [Concomitant]
  11. OXYGEN (OXYGEN) [Concomitant]

REACTIONS (5)
  - CYTOLYTIC HEPATITIS [None]
  - DILATATION VENTRICULAR [None]
  - PULMONARY HYPERTENSION [None]
  - RESPIRATORY FAILURE [None]
  - VENTRICULAR DYSKINESIA [None]
